FAERS Safety Report 25398998 (Version 1)
Quarter: 2025Q2

REPORT INFORMATION
  Report Type: Report from Study
  Country: MX (occurrence: MX)
  Receive Date: 20250605
  Receipt Date: 20250605
  Transmission Date: 20250716
  Serious: Yes (Hospitalization, Other)
  Sender: ABBVIE
  Company Number: MX-ABBVIE-6309986

PATIENT
  Age: 73 Year
  Sex: Male
  Weight: 80 kg

DRUGS (3)
  1. SKYRIZI [Suspect]
     Active Substance: RISANKIZUMAB-RZAA
     Indication: Crohn^s disease
     Dosage: 600 MILLIGRAM
     Route: 042
     Dates: start: 20250329
  2. Myfortic (Mycophenolic acid) [Concomitant]
     Indication: Immunosuppression
     Route: 048
  3. PROGRAF [Concomitant]
     Active Substance: TACROLIMUS
     Indication: Immunosuppression
     Route: 048

REACTIONS (3)
  - Intestinal perforation [Recovered/Resolved]
  - Ileostomy [Recovered/Resolved]
  - Infection [Unknown]

NARRATIVE: CASE EVENT DATE: 20250501
